FAERS Safety Report 9771751 (Version 1)
Quarter: 2013Q4

REPORT INFORMATION
  Report Type: Spontaneous
  Country: US (occurrence: US)
  Receive Date: 20131219
  Receipt Date: 20131219
  Transmission Date: 20140711
  Serious: No
  Sender: FDA-Public Use
  Company Number: US-B.I. PHARMACEUTICALS,INC./RIDGEFIELD-2013-BI-40230BP

PATIENT
  Age: 85 Year
  Sex: Female
  Weight: 64 kg

DRUGS (3)
  1. MICARDIS [Suspect]
     Indication: HYPERTENSION
     Dosage: 40 MG
     Route: 048
     Dates: start: 20131130
  2. KLONOPIN [Concomitant]
     Indication: ANXIETY
     Dosage: 150 MG
     Route: 048
  3. WELLBUTRIN [Concomitant]
     Indication: ANXIETY
     Dosage: 2 MG
     Route: 048

REACTIONS (1)
  - Hypertension [Not Recovered/Not Resolved]
